FAERS Safety Report 9062313 (Version 1)
Quarter: 2013Q1

REPORT INFORMATION
  Report Type: Spontaneous
  Country: BR (occurrence: BR)
  Receive Date: 20130129
  Receipt Date: 20130129
  Transmission Date: 20140127
  Serious: Yes (Other)
  Sender: FDA-Public Use
  Company Number: PHHY2013BR008088

PATIENT
  Sex: Female
  Weight: 62 kg

DRUGS (2)
  1. DIOVAN HCT [Suspect]
     Indication: HYPERTENSION
     Dosage: 1 DF, (160 MG VALS/ 12,5 MG HYDRO) A DAY, IN THE MORNING
     Route: 048
  2. DIUPRESS [Concomitant]
     Indication: HYPERTENSION
     Dosage: 1 DF, AT NIGHT
     Route: 048

REACTIONS (1)
  - Cataract [Recovering/Resolving]
